FAERS Safety Report 9801495 (Version 1)
Quarter: 2014Q1

REPORT INFORMATION
  Report Type: Spontaneous
  Country: US (occurrence: US)
  Receive Date: 20140107
  Receipt Date: 20140107
  Transmission Date: 20141002
  Serious: No
  Sender: FDA-Public Use
  Company Number: US-GILEAD-US-CVT-100484

PATIENT
  Sex: Male

DRUGS (3)
  1. RANEXA [Suspect]
     Indication: ANGINA PECTORIS
     Route: 048
  2. MIRALAX [Concomitant]
  3. MAGNESIUM /01486801/ [Concomitant]

REACTIONS (2)
  - Ileus [Unknown]
  - Constipation [Unknown]
